FAERS Safety Report 8249704-3 (Version None)
Quarter: 2012Q2

REPORT INFORMATION
  Report Type: 
  Country: None (occurrence: None)
  Receive Date: 20120402
  Receipt Date: 20120322
  Transmission Date: 20120825
  Serious: Yes (Other)
  Sender: FDA-Public Use
  Company Number: JP-BRISTOL-MYERS SQUIBB COMPANY-16472615

PATIENT
  Age: 76 Year
  Sex: Male

DRUGS (10)
  1. BASEN [Suspect]
     Route: 048
  2. NESINA [Suspect]
     Route: 048
  3. MEMANTINE HCL [Concomitant]
     Route: 048
  4. METFORMIN HCL [Suspect]
     Indication: DIABETES MELLITUS
     Route: 048
  5. MICARDIS [Concomitant]
     Route: 048
  6. FLIVAS [Concomitant]
     Route: 048
  7. ACTOS [Suspect]
     Route: 048
  8. LANSOPRAZOLE [Concomitant]
  9. ZYRTEC [Concomitant]
     Route: 048
  10. CEROCRAL [Concomitant]
     Route: 048

REACTIONS (4)
  - BLOOD GLUCOSE FLUCTUATION [None]
  - DEHYDRATION [None]
  - RENAL IMPAIRMENT [None]
  - NAUSEA [None]
